FAERS Safety Report 9426065 (Version 1)
Quarter: 2013Q3

REPORT INFORMATION
  Report Type: Spontaneous
  Country: DK (occurrence: DK)
  Receive Date: 20130730
  Receipt Date: 20130730
  Transmission Date: 20140515
  Serious: Yes (Other)
  Sender: FDA-Public Use
  Company Number: DK-AMGEN-DNKSP2013051202

PATIENT
  Age: 41 Year
  Sex: Female

DRUGS (1)
  1. NEUPOGEN [Suspect]
     Indication: STEM CELL DONOR
     Dosage: 960 MG, QD
     Route: 058
     Dates: start: 20100624, end: 20100627

REACTIONS (1)
  - Generalised oedema [Recovered/Resolved]
